FAERS Safety Report 4506479-9 (Version None)
Quarter: 2004Q4

REPORT INFORMATION
  Report Type: 
  Country: None (occurrence: None)
  Receive Date: 20041122
  Receipt Date: 20041110
  Transmission Date: 20050328
  Serious: Yes (Life-Threatening, Hospitalization)
  Sender: FDA-Public Use
  Company Number: SE-ABBOTT-04P-150-0280316-00

PATIENT
  Age: 71 Year
  Sex: Female

DRUGS (2)
  1. HUMIRA [Suspect]
     Indication: RHEUMATOID ARTHRITIS
     Route: 058
     Dates: start: 20040301
  2. PREDNISOLONE [Concomitant]
     Indication: RHEUMATOID ARTHRITIS

REACTIONS (3)
  - EXTRADURAL ABSCESS [None]
  - RENAL FAILURE [None]
  - STAPHYLOCOCCAL SEPSIS [None]
